FAERS Safety Report 8153304-3 (Version None)
Quarter: 2012Q1

REPORT INFORMATION
  Report Type: 
  Country: None (occurrence: None)
  Receive Date: 20120221
  Receipt Date: 20120208
  Transmission Date: 20120608
  Serious: Yes (Death, Other)
  Sender: FDA-Public Use
  Company Number: DK-ELI_LILLY_AND_COMPANY-DK201007006904

PATIENT
  Sex: Male
  Weight: 67 kg

DRUGS (4)
  1. ZYPREXA [Suspect]
     Dosage: 5 MG, PRN
     Dates: start: 20060601
  2. ZYPREXA [Suspect]
     Indication: SCHIZOPHRENIA
     Dosage: 20 MG, QD
     Route: 048
     Dates: start: 20060615
  3. ABILIFY [Concomitant]
     Indication: SCHIZOPHRENIA
     Dosage: 15 MG, BID
     Route: 048
     Dates: start: 20091104
  4. MIRTAZAPINE [Concomitant]
     Indication: DEPRESSION
     Dosage: 30 MG, QD
     Route: 048
     Dates: start: 20091104

REACTIONS (7)
  - CONVULSION [None]
  - TOXICITY TO VARIOUS AGENTS [None]
  - EOSINOPHILIC MYOCARDITIS [None]
  - DRUG INTERACTION [None]
  - OVERDOSE [None]
  - ELECTROCARDIOGRAM QT PROLONGED [None]
  - ARRHYTHMIA [None]
